FAERS Safety Report 20923760 (Version 1)
Quarter: 2022Q2

REPORT INFORMATION
  Report Type: Spontaneous
  Country: US (occurrence: None)
  Receive Date: 20220606
  Receipt Date: 20220606
  Transmission Date: 20220720
  Serious: Yes (Hospitalization)
  Sender: FDA-Public Use
  Company Number: None

PATIENT
  Sex: Female

DRUGS (26)
  1. PULMOZYME [Suspect]
     Active Substance: DORNASE ALFA
     Indication: Cystic fibrosis
     Dosage: DOSE OR AMOUNT: 2.5MG/2.5ML?
     Dates: start: 20220402
  2. ADVAIR HFA [Concomitant]
     Active Substance: FLUTICASONE PROPIONATE\SALMETEROL XINAFOATE
  3. AEROBIKA MIS [Concomitant]
  4. ALBUTEROL [Concomitant]
     Active Substance: ALBUTEROL
  5. CEFEPIME HCL INJ [Concomitant]
  6. CHOLECALCIF [Concomitant]
  7. CIPROFLOXACIN HYDROCHLORIDE [Concomitant]
     Active Substance: CIPROFLOXACIN HYDROCHLORIDE
  8. CREON [Concomitant]
     Active Substance: PANCRELIPASE AMYLASE\PANCRELIPASE LIPASE\PANCRELIPASE PROTEASE
  9. FAMOTIDINE [Concomitant]
     Active Substance: FAMOTIDINE
  10. FLUTICASONE PROPIONATE [Concomitant]
     Active Substance: FLUTICASONE PROPIONATE
  11. HEPARIN SODIUM [Concomitant]
     Active Substance: HEPARIN SODIUM
  12. SODIUM CHLORIDE [Concomitant]
     Active Substance: SODIUM CHLORIDE
  13. LACTOBACILLU TAB [Concomitant]
  14. LIDOCAINE INJ [Concomitant]
  15. LINZESS [Concomitant]
     Active Substance: LINACLOTIDE
  16. MONTELUKAST SODIUM [Concomitant]
     Active Substance: MONTELUKAST SODIUM
  17. PANCREAT [Concomitant]
  18. PARI PLUS NEBULIZER [Concomitant]
  19. PHYTONADIONE [Concomitant]
     Active Substance: PHYTONADIONE
  20. POLYETHYLENE GLYCOL [Concomitant]
     Active Substance: POLYETHYLENE GLYCOL
  21. PULMOZYME SOL [Concomitant]
  22. SOC CHLORIDE SOL 5% [Concomitant]
  23. OPSODIUM CHLORIDE [Concomitant]
  24. TOBRAMYCIN [Concomitant]
     Active Substance: TOBRAMYCIN
  25. URSODIOL [Concomitant]
     Active Substance: URSODIOL
  26. VITAMIN D3 TAB [Concomitant]

REACTIONS (1)
  - Cough [None]
